FAERS Safety Report 7723761-2 (Version None)
Quarter: 2011Q3

REPORT INFORMATION
  Report Type: 
  Country: None (occurrence: None)
  Receive Date: 20110830
  Receipt Date: 20110811
  Transmission Date: 20111222
  Serious: Yes (Other)
  Sender: FDA-Public Use
  Company Number: 2011MA011709

PATIENT
  Age: 40 Year
  Sex: Female

DRUGS (3)
  1. TOPIRAMATE [Suspect]
     Indication: ALCOHOL ABUSE
  2. FEVERALL [Suspect]
     Indication: SUICIDE ATTEMPT
     Dosage: 53500 MG; 1X; PO
     Route: 048
  3. ETHANOL [Suspect]

REACTIONS (13)
  - NAUSEA [None]
  - BLOOD CREATININE INCREASED [None]
  - METABOLIC ACIDOSIS [None]
  - HYPERREFLEXIA [None]
  - SOMNOLENCE [None]
  - ALCOHOL USE [None]
  - OVERDOSE [None]
  - MYDRIASIS [None]
  - ALANINE AMINOTRANSFERASE INCREASED [None]
  - NYSTAGMUS [None]
  - ASPARTATE AMINOTRANSFERASE INCREASED [None]
  - ELECTROCARDIOGRAM QT PROLONGED [None]
  - DEPRESSED LEVEL OF CONSCIOUSNESS [None]
